FAERS Safety Report 9889112 (Version 2)
Quarter: 2014Q2

REPORT INFORMATION
  Report Type: Report from Study
  Country: NL (occurrence: NL)
  Receive Date: 20140211
  Receipt Date: 20140402
  Transmission Date: 20141212
  Serious: Yes (Death)
  Sender: FDA-Public Use
  Company Number: NL-CELGENEUS-114-21660-14014887

PATIENT
  Age: 71 Year
  Sex: Male
  Weight: 72.9 kg

DRUGS (6)
  1. ABRAXANE [Suspect]
     Indication: PANCREATIC CARCINOMA METASTATIC
     Route: 041
     Dates: start: 20140114, end: 20140121
  2. GEMCITABINE [Suspect]
     Indication: PANCREATIC CARCINOMA METASTATIC
     Route: 065
     Dates: start: 20140114, end: 20140121
  3. FENTANYL [Concomitant]
     Indication: PAIN
     Dosage: 75 MICROGRAM
     Route: 048
     Dates: start: 20140116
  4. METOPROLOL [Concomitant]
     Indication: ABDOMINAL DISCOMFORT
     Dosage: 100 MILLIGRAM
     Route: 048
     Dates: start: 20140116
  5. VALSARTAN [Concomitant]
     Indication: HYPERTENSION
     Dosage: 160 MILLIGRAM
     Route: 048
     Dates: start: 20140116
  6. GLIMEPIRIDE [Concomitant]
     Indication: DIABETES MELLITUS
     Dosage: 3 MILLIGRAM
     Route: 048
     Dates: start: 20140116

REACTIONS (2)
  - Pneumonia [Fatal]
  - Sepsis [Fatal]
